FAERS Safety Report 7878328-2 (Version None)
Quarter: 2011Q4

REPORT INFORMATION
  Report Type: 
  Country: None (occurrence: None)
  Receive Date: 20111028
  Receipt Date: 20111013
  Transmission Date: 20120403
  Serious: Yes (Other)
  Sender: FDA-Public Use
  Company Number: FR-1187117

PATIENT
  Sex: Female

DRUGS (6)
  1. TIMOLOL MALEATE [Suspect]
     Indication: GLAUCOMA
     Dosage: (OPHTHALMIC)
     Route: 047
  2. LUMIGAN [Concomitant]
  3. CALCIUM [Concomitant]
  4. FOSAMAX [Concomitant]
  5. BETOPTIC [Suspect]
     Indication: GLAUCOMA
     Dosage: (OPHTHALMIC)
     Route: 047
  6. TRUSOPT [Concomitant]

REACTIONS (8)
  - MYALGIA [None]
  - DEPRESSION [None]
  - RAYNAUD'S PHENOMENON [None]
  - SELF-MEDICATION [None]
  - SUICIDAL IDEATION [None]
  - MORBID THOUGHTS [None]
  - CHEST DISCOMFORT [None]
  - MUSCULAR WEAKNESS [None]
